FAERS Safety Report 10507714 (Version 1)
Quarter: 2014Q4

REPORT INFORMATION
  Report Type: Spontaneous
  Country: BE (occurrence: BE)
  Receive Date: 20141009
  Receipt Date: 20141009
  Transmission Date: 20150528
  Serious: Yes (Hospitalization, Other)
  Sender: FDA-Public Use
  Company Number: BE-ACTAVIS-2014-21587

PATIENT
  Age: 55 Year
  Sex: Female

DRUGS (2)
  1. DOXORUBICIN [Suspect]
     Active Substance: DOXORUBICIN
     Indication: ADENOCARCINOMA
     Dosage: UNK
     Route: 065
  2. CISPLATIN (UNKNOWN) [Suspect]
     Active Substance: CISPLATIN
     Indication: ADENOCARCINOMA
     Dosage: UNK
     Route: 065

REACTIONS (3)
  - Staphylococcal sepsis [Recovered/Resolved]
  - Streptococcal sepsis [Recovered/Resolved]
  - Febrile neutropenia [Recovered/Resolved]
